FAERS Safety Report 18835397 (Version 1)
Quarter: 2021Q1

REPORT INFORMATION
  Report Type: Spontaneous
  Country: US (occurrence: US)
  Receive Date: 20210203
  Receipt Date: 20210203
  Transmission Date: 20210419
  Serious: Yes (Life-Threatening, Hospitalization, Other)
  Sender: FDA-Public Use
  Company Number: US-ACCORD-216204

PATIENT
  Age: 55 Year
  Sex: Male

DRUGS (7)
  1. HALOPERIDOL. [Interacting]
     Active Substance: HALOPERIDOL
     Indication: SUICIDAL IDEATION
  2. FLUOXETINE [Interacting]
     Active Substance: FLUOXETINE HYDROCHLORIDE
     Indication: SUICIDAL IDEATION
  3. BENZATROPINE/BENZATROPINE MESILATE [Interacting]
     Active Substance: BENZTROPINE
     Indication: SUICIDAL IDEATION
  4. CITALOPRAM [Interacting]
     Active Substance: CITALOPRAM HYDROBROMIDE
     Indication: SUICIDAL IDEATION
  5. QUETIAPINE. [Interacting]
     Active Substance: QUETIAPINE
     Indication: SUICIDAL IDEATION
  6. TACROLIMUS. [Suspect]
     Active Substance: TACROLIMUS
     Indication: IMMUNOSUPPRESSANT DRUG THERAPY
  7. HYDROXYZINE [Interacting]
     Active Substance: HYDROXYZINE HYDROCHLORIDE
     Indication: SUICIDAL IDEATION

REACTIONS (6)
  - Drug interaction [Unknown]
  - Tremor [Recovered/Resolved]
  - Neurotoxicity [Recovered/Resolved]
  - Nephropathy toxic [Recovering/Resolving]
  - Drug level increased [Recovered/Resolved]
  - Acute kidney injury [Recovering/Resolving]
